FAERS Safety Report 6457829-8 (Version None)
Quarter: 2009Q4

REPORT INFORMATION
  Report Type: 
  Country: None (occurrence: None)
  Receive Date: 20091120
  Receipt Date: 20091105
  Transmission Date: 20100525
  Serious: Yes (Disabling)
  Sender: FDA-Public Use
  Company Number: 002391

PATIENT
  Age: 58 Year
  Sex: Male

DRUGS (1)
  1. ALPROSTADIL [Suspect]
     Indication: ERECTILE DYSFUNCTION
     Dosage: 20 MG 2X/WEEK INTRACAVERNOUS
     Route: 017

REACTIONS (1)
  - TRANSIENT GLOBAL AMNESIA [None]
